FAERS Safety Report 6018067-6 (Version None)
Quarter: 2008Q4

REPORT INFORMATION
  Report Type: 
  Country: None (occurrence: None)
  Receive Date: 20081223
  Receipt Date: 20081215
  Transmission Date: 20090506
  Serious: Yes (Other)
  Sender: FDA-Public Use
  Company Number: US-PFIZER INC-2008155806

PATIENT
  Sex: Female
  Weight: 68.038 kg

DRUGS (5)
  1. XALATAN [Suspect]
     Indication: GLAUCOMA
     Dosage: 2 GTT, 1X/DAY
     Route: 047
  2. NEXIUM [Concomitant]
     Dosage: UNK
  3. ACETYLSALICYLIC ACID [Concomitant]
     Dosage: UNK
  4. ASCORBIC ACID/COPPER/RETINOL/TOCOPHEROL/ZINC [Concomitant]
     Dosage: UNK
  5. LUTEIN [Concomitant]
     Dosage: UNK

REACTIONS (4)
  - DRY MOUTH [None]
  - DYSPNOEA [None]
  - RAYNAUD'S PHENOMENON [None]
  - TOOTH DISORDER [None]
